FAERS Safety Report 4292640-8 (Version None)
Quarter: 2004Q1

REPORT INFORMATION
  Report Type: 
  Country: None (occurrence: None)
  Receive Date: 20040211
  Receipt Date: 20040203
  Transmission Date: 20041129
  Serious: Yes (Death, Hospitalization)
  Sender: FDA-Public Use
  Company Number: PHBS2004JP01796

PATIENT
  Age: 31 Year
  Sex: Female

DRUGS (8)
  1. CYCLOSPORINE [Suspect]
     Indication: HISTIOCYTOSIS HAEMATOPHAGIC
     Dosage: 200 MG/D
  2. ETOPOSIDE [Suspect]
     Dosage: 200 MG/D
  3. ETOPOSIDE [Suspect]
     Dosage: 500 MG/M2/D
  4. DEXAMETHASONE [Suspect]
     Dosage: 4 MG/D
  5. ACYCLOVIR [Suspect]
     Dosage: 750 MG/D
  6. GANCICLOVIR [Suspect]
     Dosage: 500 MG/D
  7. CYCLOPHOSPHAMIDE [Suspect]
     Dosage: 60 MG/KG/D
  8. TACROLIMUS [Suspect]

REACTIONS (17)
  - ALANINE AMINOTRANSFERASE INCREASED [None]
  - ASPARTATE AMINOTRANSFERASE INCREASED [None]
  - BLOOD IMMUNOGLOBULIN E INCREASED [None]
  - BLOOD LACTATE DEHYDROGENASE INCREASED [None]
  - BONE MARROW TRANSPLANT [None]
  - DISEASE RECURRENCE [None]
  - EPSTEIN-BARR VIRUS INFECTION [None]
  - GRAFT VERSUS HOST DISEASE [None]
  - HEPATIC FAILURE [None]
  - HEPATOMEGALY [None]
  - HISTIOCYTOSIS HAEMATOPHAGIC [None]
  - LIVER DISORDER [None]
  - PANCREATITIS [None]
  - PANCYTOPENIA [None]
  - PYREXIA [None]
  - SERUM FERRITIN INCREASED [None]
  - SPLENOMEGALY [None]
